FAERS Safety Report 20833205 (Version 1)
Quarter: 2022Q2

REPORT INFORMATION
  Report Type: Spontaneous
  Country: US (occurrence: US)
  Receive Date: 20220516
  Receipt Date: 20220516
  Transmission Date: 20220721
  Serious: No
  Sender: FDA-Public Use
  Company Number: US-TEVA-2022-US-2031998

PATIENT
  Sex: Female

DRUGS (1)
  1. BALZIVA [Suspect]
     Active Substance: ETHINYL ESTRADIOL\NORETHINDRONE
     Dosage: STRENGTH: 0.4 MG / 0.035 MG
     Route: 048

REACTIONS (2)
  - Product odour abnormal [Unknown]
  - Throat irritation [Unknown]
